FAERS Safety Report 8419141-7 (Version None)
Quarter: 2012Q2

REPORT INFORMATION
  Report Type: 
  Country: None (occurrence: None)
  Receive Date: 20120607
  Receipt Date: 20120530
  Transmission Date: 20120825
  Serious: Yes (Hospitalization)
  Sender: FDA-Public Use
  Company Number: GB-TEVA-340217ISR

PATIENT
  Age: 83 Year
  Sex: Male

DRUGS (14)
  1. FUCIDINE CAP [Concomitant]
  2. ASPIRIN [Suspect]
  3. VERAPAMIL [Concomitant]
  4. RAMIPRIL [Concomitant]
  5. OMEPRAZOLE [Concomitant]
  6. FLUDROCORTISONE ACETATE [Concomitant]
  7. NITROGLYCERIN [Concomitant]
  8. GABAPENTIN [Concomitant]
  9. AMITRIPTYLINE HCL [Suspect]
  10. KETOPROFEN [Suspect]
  11. ACETAMINOPHEN AND CODEINE PHOSPHATE [Concomitant]
  12. FERROUS FUMARATE [Concomitant]
  13. HUMULIN R [Concomitant]
  14. SIMVASTATIN [Concomitant]

REACTIONS (1)
  - GASTROINTESTINAL HAEMORRHAGE [None]
